FAERS Safety Report 5497032-1 (Version None)
Quarter: 2007Q4

REPORT INFORMATION
  Report Type: 
  Country: None (occurrence: None)
  Receive Date: 20071025
  Receipt Date: 20071019
  Transmission Date: 20080405
  Serious: Yes (Death, Life-Threatening)
  Sender: FDA-Public Use
  Company Number: FI-AVENTIS-200716727GDDC

PATIENT
  Age: 57 Year
  Sex: Male

DRUGS (5)
  1. ARAVA [Suspect]
     Dosage: DOSE: UNK
     Dates: start: 20070301, end: 20070520
  2. ARAVA [Suspect]
     Route: 048
     Dates: end: 20070619
  3. ATACAND [Concomitant]
     Indication: HYPERTENSION
     Route: 048
     Dates: end: 20070702
  4. ATENOL [Concomitant]
     Indication: HYPERTENSION
     Route: 048
     Dates: end: 20070702
  5. BURANA [Concomitant]

REACTIONS (9)
  - FUNGAL INFECTION [None]
  - GASTROINTESTINAL STOMA COMPLICATION [None]
  - HYPOKALAEMIA [None]
  - LARGE INTESTINE PERFORATION [None]
  - MALAISE [None]
  - PANCREATITIS [None]
  - PERITONITIS [None]
  - SEPSIS [None]
  - WOUND DEHISCENCE [None]
